FAERS Safety Report 24558162 (Version 3)
Quarter: 2025Q3

REPORT INFORMATION
  Report Type: Spontaneous
  Country: CN (occurrence: CN)
  Receive Date: 20241028
  Receipt Date: 20250809
  Transmission Date: 20251020
  Serious: Yes (Other)
  Sender: ALEXION PHARMACEUTICALS
  Company Number: CN-ASTRAZENECA-202410CHN014842CN

PATIENT
  Age: 63 Year
  Sex: Male
  Weight: 48 kg

DRUGS (4)
  1. BUDESONIDE\FORMOTEROL\GLYCOPYRRONIUM [Suspect]
     Active Substance: BUDESONIDE\FORMOTEROL\GLYCOPYRRONIUM
     Indication: Inflammation
     Dosage: 2.67 MICROGRAM, BID
     Dates: start: 20241009
  2. BUDESONIDE\FORMOTEROL\GLYCOPYRRONIUM [Suspect]
     Active Substance: BUDESONIDE\FORMOTEROL\GLYCOPYRRONIUM
     Indication: Dyspnoea
  3. BUDESONIDE [Suspect]
     Active Substance: BUDESONIDE
     Indication: Inflammation
     Dosage: 2 MILLIGRAM, BID
     Dates: start: 20241006
  4. BUDESONIDE [Suspect]
     Active Substance: BUDESONIDE
     Indication: Dyspnoea

REACTIONS (1)
  - Blood glucose increased [Recovering/Resolving]

NARRATIVE: CASE EVENT DATE: 20241010
